FAERS Safety Report 5661622-3 (Version None)
Quarter: 2008Q1

REPORT INFORMATION
  Report Type: 
  Country: None (occurrence: None)
  Receive Date: 20080312
  Receipt Date: 20080303
  Transmission Date: 20080703
  Serious: Yes (Other)
  Sender: FDA-Public Use
  Company Number: PHHY2008JP02722

PATIENT
  Age: 60 Year
  Sex: Male
  Weight: 54 kg

DRUGS (3)
  1. AMLODIN [Concomitant]
     Dosage: 5 MG, UNK
     Dates: start: 20050406
  2. CARDENALIN [Concomitant]
     Dosage: 1 DF, UNK
     Route: 048
     Dates: start: 20070731
  3. DIOVAN [Suspect]
     Indication: HYPERTENSION
     Dosage: 80 MG, QD
     Route: 048
     Dates: start: 20061204, end: 20071218

REACTIONS (2)
  - PERITONEAL DIALYSIS [None]
  - RENAL FAILURE CHRONIC [None]
